FAERS Safety Report 22643513 (Version 1)
Quarter: 2023Q2

REPORT INFORMATION
  Report Type: Spontaneous
  Country: None (occurrence: US)
  Receive Date: 20230627
  Receipt Date: 20230627
  Transmission Date: 20230721
  Serious: No
  Sender: FDA-Public Use
  Company Number: US-ITALFARMACO SPA-2143148

PATIENT
  Age: 61 Year
  Sex: Male

DRUGS (12)
  1. TIGLUTIK [Suspect]
     Active Substance: RILUZOLE
     Indication: Amyotrophic lateral sclerosis
     Dates: start: 20220721
  2. CHLORTHALIDONE [Concomitant]
     Active Substance: CHLORTHALIDONE
  3. CITALOPRAM [Concomitant]
     Active Substance: CITALOPRAM HYDROBROMIDE
  4. DILTIAZEM [Concomitant]
     Active Substance: DILTIAZEM
  5. INOSITOL [Concomitant]
     Active Substance: INOSITOL
  6. LACTULOSE [Concomitant]
     Active Substance: LACTULOSE
  7. VITAMINS [Concomitant]
     Active Substance: VITAMINS
  8. OLMESARTAN [Concomitant]
     Active Substance: OLMESARTAN
  9. OMEPRAZOLE [Concomitant]
     Active Substance: OMEPRAZOLE
  10. SPIRONOLACTONE [Concomitant]
     Active Substance: SPIRONOLACTONE
  11. TAMSULOSIN [Concomitant]
     Active Substance: TAMSULOSIN
  12. URSODOXICOLTAURINE [Concomitant]
     Active Substance: URSODOXICOLTAURINE

REACTIONS (1)
  - Eye infection [Not Recovered/Not Resolved]
